FAERS Safety Report 8050701-1 (Version None)
Quarter: 2012Q1

REPORT INFORMATION
  Report Type: 
  Country: None (occurrence: None)
  Receive Date: 20120111
  Receipt Date: 20111229
  Transmission Date: 20120608
  Serious: Yes (Other)
  Sender: FDA-Public Use
  Company Number: JPI-P-019063

PATIENT
  Sex: Male

DRUGS (3)
  1. AMPHETAMINE, DEXTROAMPHETAMINE MIXED SALTS [Concomitant]
  2. MEDICINAL MARIJUANA [Concomitant]
  3. XYREM [Suspect]
     Indication: PRODUCT USED FOR UNKNOWN INDICATION
     Dosage: ORAL
     Route: 048

REACTIONS (9)
  - ANAPHYLACTIC REACTION [None]
  - SOMNAMBULISM [None]
  - GASTRIC DISORDER [None]
  - AGGRESSION [None]
  - SLEEP TERROR [None]
  - SCREAMING [None]
  - CONTUSION [None]
  - EATING DISORDER [None]
  - VOMITING [None]
